FAERS Safety Report 5326045-5 (Version None)
Quarter: 2007Q2

REPORT INFORMATION
  Report Type: 
  Country: None (occurrence: None)
  Receive Date: 20070516
  Receipt Date: 20070501
  Transmission Date: 20071010
  Serious: Yes (Hospitalization)
  Sender: FDA-Public Use
  Company Number: US-AMGEN-STX219494

PATIENT
  Sex: Female
  Weight: 83.1 kg

DRUGS (10)
  1. ENBREL [Suspect]
     Indication: RHEUMATOID ARTHRITIS
     Route: 058
     Dates: start: 20040501
  2. ENBREL [Suspect]
     Route: 058
     Dates: start: 20070301
  3. ARAVA [Concomitant]
     Dates: start: 19990501, end: 20000901
  4. ARAVA [Concomitant]
     Dates: start: 20010401, end: 20070301
  5. PAXIL [Concomitant]
  6. LODINE [Concomitant]
  7. TOPROL-XL [Concomitant]
  8. NSAIDS [Concomitant]
  9. ACCUPRIL [Concomitant]
  10. PREDNISONE TAB [Concomitant]

REACTIONS (7)
  - BRONCHITIS [None]
  - CHRONIC OBSTRUCTIVE PULMONARY DISEASE [None]
  - DIABETES MELLITUS [None]
  - INJECTION SITE IRRITATION [None]
  - INJECTION SITE PAIN [None]
  - PNEUMONIA [None]
  - RESPIRATORY FAILURE [None]
